FAERS Safety Report 5035328-8 (Version None)
Quarter: 2006Q2

REPORT INFORMATION
  Report Type: 
  Country: None (occurrence: None)
  Receive Date: 20060523
  Receipt Date: 20050630
  Transmission Date: 20061013
  Serious: Yes (Other)
  Sender: FDA-Public Use
  Company Number: 0506-282

PATIENT
  Sex: Male
  Weight: 61.2356 kg

DRUGS (1)
  1. DUONEB [Suspect]
     Indication: DYSPNOEA
     Dosage: AEROSOL

REACTIONS (1)
  - HEART RATE INCREASED [None]
